FAERS Safety Report 11302341 (Version 1)
Quarter: 2015Q3

REPORT INFORMATION
  Report Type: Spontaneous
  Country: US (occurrence: None)
  Receive Date: 20150723
  Receipt Date: 20150723
  Transmission Date: 20151125
  Serious: Yes (Hospitalization)
  Sender: FDA-Public Use
  Company Number: None

PATIENT
  Age: 41 Year
  Sex: Male
  Weight: 66.2 kg

DRUGS (1)
  1. CEFTAROLINE [Suspect]
     Active Substance: CEFTAROLINE
     Indication: OSTEOMYELITIS
     Route: 042
     Dates: start: 20150701, end: 20150719

REACTIONS (3)
  - Neutropenia [None]
  - Agranulocytosis [None]
  - Leukopenia [None]

NARRATIVE: CASE EVENT DATE: 20150718
